FAERS Safety Report 4977902-0 (Version None)
Quarter: 2006Q2

REPORT INFORMATION
  Report Type: 
  Country: None (occurrence: None)
  Receive Date: 20060420
  Receipt Date: 20051220
  Transmission Date: 20061013
  Serious: Yes (Hospitalization)
  Sender: FDA-Public Use
  Company Number: US-MERCK-0512USA03251

PATIENT
  Age: 60 Year
  Sex: Male
  Weight: 105 kg

DRUGS (7)
  1. VIOXX [Suspect]
     Indication: BACK PAIN
     Route: 048
  2. SKELAXIN [Concomitant]
     Route: 048
  3. LORAZEPAM [Concomitant]
     Route: 065
  4. BEXTRA [Concomitant]
     Route: 048
  5. HYDROCHLOROTHIAZIDE [Concomitant]
     Route: 065
  6. LISINOPRIL [Concomitant]
     Route: 065
  7. BUSPAR [Concomitant]
     Route: 048

REACTIONS (7)
  - ANXIETY [None]
  - ATRIAL FIBRILLATION [None]
  - CARDIOMEGALY [None]
  - DEPRESSION [None]
  - FALL [None]
  - SKIN LACERATION [None]
  - THROMBOSIS [None]
